FAERS Safety Report 24593674 (Version 1)
Quarter: 2024Q4

REPORT INFORMATION
  Report Type: Spontaneous
  Country: US (occurrence: US)
  Receive Date: 20241108
  Receipt Date: 20241108
  Transmission Date: 20250115
  Serious: No
  Sender: BAXTER
  Company Number: US-BAXTER-2024BAX026420

PATIENT
  Sex: Female

DRUGS (2)
  1. CLINIMIX [Suspect]
     Active Substance: CLINIMIX
     Dosage: UNK
     Route: 065
     Dates: start: 20241015
  2. CLINIMIX [Suspect]
     Active Substance: CLINIMIX
     Dosage: UNK, CLINIMAX WITHOUT ELECTROLYTES WAS TRIALED WITH BENADRYL
     Route: 065
     Dates: start: 20241016

REACTIONS (2)
  - Lip swelling [Unknown]
  - Urticaria [Unknown]

NARRATIVE: CASE EVENT DATE: 20241016
